FAERS Safety Report 8345566-4 (Version None)
Quarter: 2012Q2

REPORT INFORMATION
  Report Type: 
  Country: None (occurrence: None)
  Receive Date: 20120508
  Receipt Date: 20110324
  Transmission Date: 20120825
  Serious: No
  Sender: FDA-Public Use
  Company Number: US-BAUSCH-2011BL001932

PATIENT
  Age: 24 Year
  Sex: Male

DRUGS (2)
  1. NASONEX [Concomitant]
     Indication: SEASONAL ALLERGY
     Route: 045
  2. ALREX [Suspect]
     Indication: EYE ALLERGY
     Route: 047
     Dates: start: 20110322, end: 20110323

REACTIONS (2)
  - MYDRIASIS [None]
  - VISION BLURRED [None]
